FAERS Safety Report 19701085 (Version 1)
Quarter: 2021Q3

REPORT INFORMATION
  Report Type: Spontaneous
  Country: AU (occurrence: AU)
  Receive Date: 20210813
  Receipt Date: 20210813
  Transmission Date: 20211014
  Serious: Yes (Other)
  Sender: FDA-Public Use
  Company Number: AU-MYLANLABS-2021M1051104

PATIENT
  Age: 20 Year
  Sex: Male

DRUGS (8)
  1. USTEKINUMAB [Concomitant]
     Active Substance: USTEKINUMAB
     Indication: CROHN^S DISEASE
     Dosage: UNK
     Route: 065
     Dates: start: 201907
  2. INFLIXIMAB [Suspect]
     Active Substance: INFLIXIMAB
     Indication: CROHN^S DISEASE
     Dosage: UNK
     Route: 065
     Dates: start: 2015, end: 2018
  3. PREDNISOLONE. [Concomitant]
     Active Substance: PREDNISOLONE
     Dosage: 50 MILLIGRAM, QD, DOSAGE: FOLLOWED BY GRADUAL TAPERING OF DOSE
     Route: 065
  4. FOLIC ACID. [Concomitant]
     Active Substance: FOLIC ACID
     Indication: PRODUCT USED FOR UNKNOWN INDICATION
     Dosage: UNK
     Route: 065
     Dates: start: 2017
  5. METHOTREXATE. [Concomitant]
     Active Substance: METHOTREXATE
     Indication: CROHN^S DISEASE
     Dosage: UNK
     Route: 065
     Dates: start: 2017
  6. ADALIMUMAB [Suspect]
     Active Substance: ADALIMUMAB
     Indication: CROHN^S DISEASE
     Dosage: 40 MILLIGRAM, QW
     Route: 065
     Dates: start: 2018
  7. CLOBETASOL [Concomitant]
     Active Substance: CLOBETASOL
     Indication: PEMPHIGOID
     Dosage: UNK
     Route: 061
  8. PREDNISOLONE. [Concomitant]
     Active Substance: PREDNISOLONE
     Indication: PEMPHIGOID
     Dosage: UNK
     Route: 065

REACTIONS (1)
  - Pemphigoid [Recovering/Resolving]
